FAERS Safety Report 4515152-2 (Version None)
Quarter: 2004Q4

REPORT INFORMATION
  Report Type: 
  Country: None (occurrence: None)
  Receive Date: 20041126
  Receipt Date: 20041117
  Transmission Date: 20050328
  Serious: Yes (Life-Threatening, Hospitalization)
  Sender: FDA-Public Use
  Company Number: NUBN20040023

PATIENT
  Age: 1 Day
  Sex: Male
  Weight: 2.9937 kg

DRUGS (3)
  1. NUBAIN [Suspect]
     Indication: LABOUR PAIN
     Dosage: 10 MG ONCE PLACENTAL
     Route: 064
     Dates: start: 20041026, end: 20041026
  2. EFFEXOR [Concomitant]
  3. PRENATAL VITAMINS [Concomitant]

REACTIONS (9)
  - BLOOD GLUCOSE DECREASED [None]
  - CAESAREAN SECTION [None]
  - CHILLS [None]
  - DEHYDRATION [None]
  - DRUG EXPOSURE DURING PREGNANCY [None]
  - FEVER NEONATAL [None]
  - NEONATAL DISORDER [None]
  - NEONATAL RESPIRATORY ARREST [None]
  - PREMATURE BABY [None]
